FAERS Safety Report 6606670-1 (Version None)
Quarter: 2010Q1

REPORT INFORMATION
  Report Type: 
  Country: None (occurrence: None)
  Receive Date: 20100226
  Receipt Date: 20100216
  Transmission Date: 20100710
  Serious: Yes (Other)
  Sender: FDA-Public Use
  Company Number: US-ABBOTT-10P-163-0626371-00

PATIENT
  Sex: Female
  Weight: 81.72 kg

DRUGS (17)
  1. HUMIRA [Suspect]
     Indication: RHEUMATOID ARTHRITIS
     Dates: start: 20040201
  2. METHOTREXATE [Concomitant]
     Indication: DRUG USE FOR UNKNOWN INDICATION
  3. FOLIC ACID [Concomitant]
     Indication: DRUG USE FOR UNKNOWN INDICATION
  4. ALENDRONATE SODIUM [Concomitant]
     Indication: DRUG USE FOR UNKNOWN INDICATION
  5. LIDODERM [Concomitant]
     Indication: DRUG USE FOR UNKNOWN INDICATION
  6. CLARINEX [Concomitant]
     Indication: DRUG USE FOR UNKNOWN INDICATION
  7. CYMBALTA [Concomitant]
     Indication: DRUG USE FOR UNKNOWN INDICATION
  8. CLONAZEPAM [Concomitant]
     Indication: DRUG USE FOR UNKNOWN INDICATION
  9. CRESTOR [Concomitant]
     Indication: DRUG USE FOR UNKNOWN INDICATION
  10. DIOVAN [Concomitant]
     Indication: DRUG USE FOR UNKNOWN INDICATION
  11. METOPROLOL TARTRATE [Concomitant]
     Indication: DRUG USE FOR UNKNOWN INDICATION
  12. NITROSTAT [Concomitant]
     Indication: DRUG USE FOR UNKNOWN INDICATION
  13. NITROGLYCERIN [Concomitant]
     Indication: DRUG USE FOR UNKNOWN INDICATION
  14. BABY ASPIRIN [Concomitant]
     Indication: DRUG USE FOR UNKNOWN INDICATION
  15. LOVAZA [Concomitant]
     Indication: DRUG USE FOR UNKNOWN INDICATION
  16. VITAMIN D [Concomitant]
     Indication: DRUG USE FOR UNKNOWN INDICATION
  17. CALCIUM [Concomitant]
     Indication: DRUG USE FOR UNKNOWN INDICATION

REACTIONS (4)
  - CATARACT OPERATION [None]
  - NASOPHARYNGITIS [None]
  - SPINAL COLUMN STENOSIS [None]
  - SPUTUM DISCOLOURED [None]
